FAERS Safety Report 5788410-1 (Version None)
Quarter: 2008Q2

REPORT INFORMATION
  Report Type: 
  Country: None (occurrence: None)
  Receive Date: 20080623
  Receipt Date: 20080609
  Transmission Date: 20081010
  Serious: Yes (Hospitalization)
  Sender: FDA-Public Use
  Company Number: 2008AL005186

PATIENT
  Age: 85 Year
  Sex: Female
  Weight: 40.8237 kg

DRUGS (5)
  1. DIGOXIN [Suspect]
     Indication: ATRIAL FIBRILLATION
     Dosage: 0.125 MG,QD, PO
     Route: 048
  2. DIOVAN [Concomitant]
  3. OXYBUTYNIN CHLORIDE [Concomitant]
  4. LOPRESSOR [Concomitant]
  5. COUMADIN [Concomitant]

REACTIONS (4)
  - CONTUSION [None]
  - DIZZINESS [None]
  - FALL [None]
  - MULTIPLE FRACTURES [None]
